FAERS Safety Report 8046199-X (Version None)
Quarter: 2012Q1

REPORT INFORMATION
  Report Type: 
  Country: None (occurrence: None)
  Receive Date: 20120113
  Receipt Date: 20120102
  Transmission Date: 20120608
  Serious: Yes (Death, Hospitalization)
  Sender: FDA-Public Use
  Company Number: US-BAYER-2012-000981

PATIENT
  Age: 19 Year
  Sex: Female

DRUGS (3)
  1. ACETYLSALICYLIC ACID SRT [Suspect]
     Dosage: 100 MG, ONCE
     Route: 048
  2. IBUPROFEN [Suspect]
     Dosage: 500 DF, ONCE
     Route: 048
  3. ACETAMINOPHEN AND HYDROCODONE BITARTRATE [Suspect]
     Dosage: 30 DF, ONCE
     Route: 048

REACTIONS (7)
  - CONVULSION [None]
  - MULTI-ORGAN FAILURE [None]
  - TOXICITY TO VARIOUS AGENTS [None]
  - AGITATION [None]
  - HYPOTENSION [None]
  - ACIDOSIS [None]
  - HYPERKALAEMIA [None]
